FAERS Safety Report 6332201-X (Version None)
Quarter: 2009Q3

REPORT INFORMATION
  Report Type: 
  Country: None (occurrence: None)
  Receive Date: 20090827
  Receipt Date: 20090827
  Transmission Date: 20100115
  Serious: Yes (Hospitalization)
  Sender: FDA-Public Use
  Company Number: None

PATIENT
  Sex: Male
  Weight: 82.1011 kg

DRUGS (14)
  1. TARCEVA [Suspect]
     Indication: RENAL CELL CARCINOMA
     Dosage: 150MG (1 PILL) Q1D ORAL
     Route: 048
     Dates: start: 20090324, end: 20090819
  2. SUTENT [Suspect]
     Dosage: 50MG (1 PILL) Q1D ORAL
     Route: 048
     Dates: start: 20090324, end: 20090819
  3. LORAZEPAM [Concomitant]
  4. OXYCODONE [Concomitant]
  5. BUPROPION HCL [Concomitant]
  6. CARBIDOPA-LEVODOPA [Concomitant]
  7. PROCHLORPERAZINE MALEATE [Concomitant]
  8. DUCOSATE SODIUM [Concomitant]
  9. VIAGRA [Concomitant]
  10. ONDANSETRON HCL [Concomitant]
  11. MORPHINE [Concomitant]
  12. CYCLOBENZAPRINE [Concomitant]
  13. METROGEL [Concomitant]
  14. SIMVASTATIN [Concomitant]

REACTIONS (7)
  - CONSTIPATION [None]
  - HAEMODIALYSIS [None]
  - HYDRONEPHROSIS [None]
  - NAUSEA [None]
  - RASH [None]
  - RENAL FAILURE ACUTE [None]
  - VOMITING [None]
